FAERS Safety Report 6343359-0 (Version None)
Quarter: 2009Q3

REPORT INFORMATION
  Report Type: 
  Country: None (occurrence: None)
  Receive Date: 20090908
  Receipt Date: 20090831
  Transmission Date: 20100115
  Serious: Yes (Death, Hospitalization)
  Sender: FDA-Public Use
  Company Number: PHHY2009DE37118

PATIENT
  Age: 60 Year
  Sex: Male

DRUGS (4)
  1. CYCLOSPORINE [Suspect]
     Indication: LIVER TRANSPLANT
     Dosage: UNK
     Dates: start: 20060916
  2. CYCLOSPORINE [Suspect]
     Dosage: UNK
     Route: 048
  3. CORTICOSTEROIDS [Suspect]
     Indication: LIVER TRANSPLANT
     Dosage: UNK
     Dates: start: 20060916
  4. RAPAMYCIN [Concomitant]

REACTIONS (7)
  - BILE DUCT STENOSIS [None]
  - BILE DUCT STENT INSERTION [None]
  - BLOOD BILIRUBIN INCREASED [None]
  - GENERAL PHYSICAL HEALTH DETERIORATION [None]
  - HEPATIC LESION [None]
  - NEOPLASM PROGRESSION [None]
  - NEUROENDOCRINE CARCINOMA [None]
